FAERS Safety Report 14146892 (Version 1)
Quarter: 2017Q4

REPORT INFORMATION
  Report Type: Report from Study
  Country: IT (occurrence: IT)
  Receive Date: 20171031
  Receipt Date: 20171031
  Transmission Date: 20180321
  Serious: Yes (Death, Other)
  Sender: FDA-Public Use
  Company Number: IT-CELGENEUS-083-21880-14012140

PATIENT

DRUGS (2)
  1. CYTARABINE. [Suspect]
     Active Substance: CYTARABINE
     Indication: ACUTE MYELOID LEUKAEMIA
     Dosage: 40 MILLIGRAM/SQ. METER
     Route: 058
  2. REVLIMID [Suspect]
     Active Substance: LENALIDOMIDE
     Indication: ACUTE MYELOID LEUKAEMIA
     Dosage: 10 MILLIGRAM
     Route: 048

REACTIONS (16)
  - Acute myeloid leukaemia [Fatal]
  - Thrombocytopenia [Unknown]
  - Neutropenia [Unknown]
  - Anaemia [Unknown]
  - Sepsis [Unknown]
  - Hepatobiliary disease [Unknown]
  - Acute myeloid leukaemia recurrent [Unknown]
  - Bone marrow failure [Fatal]
  - Infection [Fatal]
  - Skin disorder [Unknown]
  - Lung neoplasm malignant [Fatal]
  - Febrile neutropenia [Unknown]
  - Cardiac disorder [Unknown]
  - Multiple organ dysfunction syndrome [Fatal]
  - Mucosal inflammation [Unknown]
  - Cardiac failure acute [Fatal]
